FAERS Safety Report 18318399 (Version 1)
Quarter: 2020Q3

REPORT INFORMATION
  Report Type: Spontaneous
  Country: US (occurrence: US)
  Receive Date: 20200918
  Receipt Date: 20200918
  Transmission Date: 20201103
  Serious: Yes (Other)
  Sender: FDA-Public Use
  Company Number: None

PATIENT
  Age: 4 Decade
  Sex: Female

DRUGS (3)
  1. CEFTEZOLE [Suspect]
     Active Substance: CEFTEZOLE SODIUM
     Indication: COVID-19 TREATMENT
     Route: 030
  2. MOXIFLOXACIN. [Suspect]
     Active Substance: MOXIFLOXACIN
     Indication: COVID-19
     Route: 048
  3. OSELTAMIVIR [Suspect]
     Active Substance: OSELTAMIVIR
     Route: 048

REACTIONS (3)
  - Product use in unapproved indication [None]
  - Product use issue [None]
  - Dizziness [None]

NARRATIVE: CASE EVENT DATE: 2020
